FAERS Safety Report 19845503 (Version 3)
Quarter: 2022Q4

REPORT INFORMATION
  Report Type: Report from Study
  Country: CA (occurrence: CA)
  Receive Date: 20210916
  Receipt Date: 20221010
  Transmission Date: 20230113
  Serious: Yes (Other)
  Sender: FDA-Public Use
  Company Number: CA-BAUSCH-BL-2021-031534

PATIENT
  Age: 58 Year
  Sex: Male

DRUGS (6)
  1. SILIQ [Suspect]
     Active Substance: BRODALUMAB
     Indication: Psoriasis
     Dosage: 210MG/ 1.5 ML, WEEKLY, WEEK 1- 01/SEP/2021, WEEK 2- 08/SEP/2021, WEEK 3- /SEP/2021
     Route: 058
     Dates: start: 20210901, end: 202109
  2. SILIQ [Suspect]
     Active Substance: BRODALUMAB
     Dosage: 210MG/ 1.5 ML
     Route: 058
  3. SILIQ [Suspect]
     Active Substance: BRODALUMAB
     Dosage: 210MG/ 1.5 ML
     Route: 058
     Dates: start: 2022
  4. SILIQ [Suspect]
     Active Substance: BRODALUMAB
     Dosage: 210MG/ 1.5 ML, OFF LABEL Q 4 WEEKS
     Route: 058
     Dates: start: 2022
  5. VITAMIN D [Concomitant]
     Active Substance: VITAMIN D NOS
     Indication: Product used for unknown indication
  6. FISH OIL [Concomitant]
     Active Substance: FISH OIL
     Indication: Product used for unknown indication

REACTIONS (1)
  - Blood pressure increased [Unknown]

NARRATIVE: CASE EVENT DATE: 20210901
